FAERS Safety Report 13896575 (Version 2)
Quarter: 2017Q3

REPORT INFORMATION
  Report Type: Report from Study
  Country: US (occurrence: MX)
  Receive Date: 20170823
  Receipt Date: 20170906
  Transmission Date: 20171127
  Serious: Yes (Death, Hospitalization)
  Sender: FDA-Public Use
  Company Number: US-SUNOVION-2017SUN003638

PATIENT
  Age: 48 Year
  Sex: Female

DRUGS (2)
  1. INDACATEROL AND GLYCOPYRROLATE [Suspect]
     Active Substance: GLYCOPYRROLATE\INDACATEROL MALEATE
     Indication: LUNG DISORDER
     Dosage: 1 DF (50 UG GLYCOPYRRONIUM BROMIDE/ 110 UG OF INDACATEROL), QD
     Route: 065
     Dates: start: 201704, end: 20170713
  2. MIFLONIDE [Suspect]
     Active Substance: BUDESONIDE
     Indication: LUNG DISORDER
     Dosage: 400 ?G, UNK
     Route: 065
     Dates: start: 201704, end: 20170713

REACTIONS (3)
  - Respiratory failure [Fatal]
  - Product use in unapproved indication [Unknown]
  - Dyspnoea [None]

NARRATIVE: CASE EVENT DATE: 20170713
